FAERS Safety Report 12467531 (Version 3)
Quarter: 2016Q2

REPORT INFORMATION
  Report Type: Spontaneous
  Country: IT (occurrence: IT)
  Receive Date: 20160615
  Receipt Date: 20160629
  Transmission Date: 20160815
  Serious: Yes (Other)
  Sender: FDA-Public Use
  Company Number: PHHY2016IT081824

PATIENT
  Age: 39 Year
  Sex: Female

DRUGS (5)
  1. SUMATRIPTAN. [Suspect]
     Active Substance: SUMATRIPTAN
     Indication: ANALGESIC THERAPY
  2. LIOMETACEN [Suspect]
     Active Substance: INDOMETHACIN SODIUM
     Indication: INFLAMMATION
     Route: 065
     Dates: start: 20160404, end: 20160404
  3. SUMATRIPTAN. [Suspect]
     Active Substance: SUMATRIPTAN
     Indication: HEADACHE
     Dosage: UNK
     Route: 048
     Dates: start: 20160404, end: 20160404
  4. LIOMETACEN [Suspect]
     Active Substance: INDOMETHACIN SODIUM
     Indication: HEADACHE
  5. LIOMETACEN [Suspect]
     Active Substance: INDOMETHACIN SODIUM
     Indication: ANALGESIC THERAPY

REACTIONS (3)
  - Drug abuse [Recovering/Resolving]
  - Migraine [Recovering/Resolving]
  - Nausea [Recovering/Resolving]

NARRATIVE: CASE EVENT DATE: 20160404
